FAERS Safety Report 15131683 (Version 1)
Quarter: 2018Q3

REPORT INFORMATION
  Report Type: Spontaneous
  Country: PL (occurrence: PL)
  Receive Date: 20180711
  Receipt Date: 20180711
  Transmission Date: 20181010
  Serious: Yes (Other)
  Sender: FDA-Public Use
  Company Number: PL-FRESENIUS KABI-FK201807515

PATIENT
  Age: 60 Year
  Sex: Male
  Weight: 75 kg

DRUGS (2)
  1. GLUCOSE 5% (MANUFACTURER UNKNOWN) [Suspect]
     Active Substance: DEXTROSE
     Indication: HEPATITIS B
     Route: 041
     Dates: start: 20140516, end: 20140525
  2. BUSCOLYSIN [Suspect]
     Active Substance: BUTYLSCOPOLAMINE
     Indication: HEPATITIS B
     Dosage: 1 AMPOULE 0.02
     Route: 041
     Dates: start: 20140516, end: 20140525

REACTIONS (2)
  - Pyrexia [Recovered/Resolved]
  - Chills [Recovered/Resolved]

NARRATIVE: CASE EVENT DATE: 20140525
